FAERS Safety Report 6747051-X (Version None)
Quarter: 2010Q2

REPORT INFORMATION
  Report Type: 
  Country: None (occurrence: None)
  Receive Date: 20100528
  Receipt Date: 20100518
  Transmission Date: 20101027
  Serious: Yes (Other)
  Sender: FDA-Public Use
  Company Number: US-ROCHE-705422

PATIENT
  Sex: Female

DRUGS (2)
  1. AVASTIN [Suspect]
     Route: 065
  2. ZOMETA [Suspect]
     Route: 065

REACTIONS (1)
  - OSTEONECROSIS OF JAW [None]
